FAERS Safety Report 12161318 (Version 6)
Quarter: 2019Q1

REPORT INFORMATION
  Report Type: Spontaneous
  Country: FR (occurrence: FR)
  Receive Date: 20160308
  Receipt Date: 20190315
  Transmission Date: 20190417
  Serious: Yes (Congenital Anomaly, Other)
  Sender: FDA-Public Use
  Company Number: FR-ABBVIE-16P-056-1577470-00

PATIENT
  Sex: Female

DRUGS (1)
  1. DEPAKINE CHRONO [Suspect]
     Active Substance: VALPROATE SODIUM
     Indication: MATERNAL EXPOSURE TIMING UNSPECIFIED
     Route: 064

REACTIONS (25)
  - Congenital joint malformation [Unknown]
  - Congenital anomaly [Not Recovered/Not Resolved]
  - Scoliosis [Not Recovered/Not Resolved]
  - Hypotonia [Unknown]
  - Motor dysfunction [Unknown]
  - Upper respiratory tract infection [Unknown]
  - Anxiety [Unknown]
  - Abnormal behaviour [Not Recovered/Not Resolved]
  - Psychomotor skills impaired [Not Recovered/Not Resolved]
  - Developmental delay [Unknown]
  - Foetal exposure during pregnancy [Unknown]
  - Lordosis [Unknown]
  - Hypermobility syndrome [Unknown]
  - Cognitive disorder [Not Recovered/Not Resolved]
  - Visual impairment [Not Recovered/Not Resolved]
  - Laryngitis [Recovered/Resolved]
  - Ear infection [Recovered/Resolved]
  - Muscle spasticity [Unknown]
  - Myopia [Not Recovered/Not Resolved]
  - Astigmatism [Unknown]
  - Enuresis [Unknown]
  - Speech disorder developmental [Not Recovered/Not Resolved]
  - Disturbance in attention [Not Recovered/Not Resolved]
  - Respiratory distress [Recovered/Resolved]
  - Tension [Unknown]

NARRATIVE: CASE EVENT DATE: 2005
